FAERS Safety Report 21629848 (Version 1)
Quarter: 2022Q4

REPORT INFORMATION
  Report Type: Spontaneous
  Country: CN (occurrence: CN)
  Receive Date: 20221122
  Receipt Date: 20221122
  Transmission Date: 20230113
  Serious: Yes (Hospitalization, Other)
  Sender: FDA-Public Use
  Company Number: CN-SA-2022SA468856

PATIENT
  Age: 54 Year
  Sex: Female

DRUGS (3)
  1. DOCETAXEL [Suspect]
     Active Substance: DOCETAXEL
     Indication: Ovarian cancer
     Dosage: [DOCETAXEL, INTRAVENOUS (I.V.) INFUSION BY 60 MINUTES
     Route: 041
     Dates: start: 2016
  2. DOCETAXEL [Suspect]
     Active Substance: DOCETAXEL
     Dosage: MAINTENANCE THERAPY,DOCETAXEL, I.V. INFUSION BY 60 MINUTES, 70 MG/M2, DL)
     Route: 041
     Dates: start: 201610, end: 201705
  3. CARBOPLATIN [Suspect]
     Active Substance: CARBOPLATIN
     Indication: Ovarian cancer
     Dosage: 70 MG/M2, DL; CARBOPLATIN, I.V. INFUSION OVER 30 MINUTES
     Route: 041
     Dates: start: 2016

REACTIONS (7)
  - Chronic myelomonocytic leukaemia with N-ras gene mutation [Unknown]
  - Leukaemia [Unknown]
  - Ecchymosis [Unknown]
  - Hyperleukocytosis [Unknown]
  - Monocytosis [Unknown]
  - Bone marrow failure [Recovering/Resolving]
  - Pancytopenia [Recovering/Resolving]

NARRATIVE: CASE EVENT DATE: 20200101
